FAERS Safety Report 15750912 (Version 1)
Quarter: 2018Q4

REPORT INFORMATION
  Report Type: Spontaneous
  Country: US (occurrence: US)
  Receive Date: 20181221
  Receipt Date: 20181221
  Transmission Date: 20190205
  Serious: No
  Sender: FDA-Public Use
  Company Number: US-BAYER-2018-239139

PATIENT
  Age: 63 Year
  Sex: Female
  Weight: 75.28 kg

DRUGS (2)
  1. MIRALAX [Suspect]
     Active Substance: POLYETHYLENE GLYCOL 3350
     Indication: GASTROINTESTINAL DISORDER
     Dosage: 7 DOSES AT ONCE
     Route: 048
     Dates: start: 201705
  2. MIRALAX [Suspect]
     Active Substance: POLYETHYLENE GLYCOL 3350
     Indication: COLONOSCOPY
     Dosage: 7 DOSES AT ONCE
     Route: 048

REACTIONS (3)
  - Off label use [None]
  - Product use in unapproved indication [None]
  - Circumstance or information capable of leading to medication error [None]
